FAERS Safety Report 16692150 (Version 2)
Quarter: 2020Q1

REPORT INFORMATION
  Report Type: Spontaneous
  Country: ES (occurrence: ES)
  Receive Date: 20190812
  Receipt Date: 20200217
  Transmission Date: 20200409
  Serious: Yes (Hospitalization)
  Sender: FDA-Public Use
  Company Number: ES-MYLANLABS-2019M1074311

PATIENT
  Age: 82 Year
  Sex: Female

DRUGS (8)
  1. MANIDON HTA [Interacting]
     Active Substance: VERAPAMIL HYDROCHLORIDE
     Indication: ATRIAL FIBRILLATION
     Dosage: 80 MILLIGRAM, QD (1/24 H)
     Route: 048
     Dates: start: 20121002, end: 20190208
  2. SINTROM [Concomitant]
     Active Substance: ACENOCOUMAROL
     Dosage: UNK
     Route: 048
  3. QUETIAPINE. [Suspect]
     Active Substance: QUETIAPINE
     Indication: PRODUCT USED FOR UNKNOWN INDICATION
     Dosage: 25 MILLIGRAM, QD (0-0-1. CURSO CL?NICO CEX SALUD MENTAL 09/01/2019: PAUTO QUETIAPINA)
     Route: 048
     Dates: start: 20190109
  4. DORMICUM                           /00036201/ [Concomitant]
     Active Substance: NITRAZEPAM
     Dosage: 7.5 MILLIGRAM, QD 0-0-1
     Route: 048
  5. LORAZEPAM. [Concomitant]
     Active Substance: LORAZEPAM
     Dosage: 1 MILLIGRAM, BID 1-0-1
     Route: 048
  6. OMEPRAZOL                          /00661201/ [Concomitant]
     Active Substance: OMEPRAZOLE
     Dosage: 40 MILLIGRAM, BID 1-0-1
     Route: 048
  7. DONEPEZIL. [Interacting]
     Active Substance: DONEPEZIL
     Indication: COGNITIVE DISORDER
     Dosage: 1 DOSAGE FORM, QD (1/24 H. CEX NEUROLOG?A 02/08/2018 LE PAUTA 5 MG UN COMPRIMIDO ANTES DE )
     Route: 048
     Dates: start: 201808, end: 20190214
  8. SERTRALINA                         /01011401/ [Concomitant]
     Active Substance: SERTRALINE HYDROCHLORIDE
     Dosage: 100 MILLIGRAM, QD,1-0-0
     Route: 048

REACTIONS (4)
  - Atrial fibrillation [Recovered/Resolved]
  - Bradycardia [Recovered/Resolved]
  - Syncope [Recovered/Resolved]
  - Drug interaction [Unknown]

NARRATIVE: CASE EVENT DATE: 20190208
